FAERS Safety Report 21943948 (Version 2)
Quarter: 2023Q1

REPORT INFORMATION
  Report Type: Report from Study
  Country: US (occurrence: US)
  Receive Date: 20230202
  Receipt Date: 20230214
  Transmission Date: 20230417
  Serious: Yes (Other)
  Sender: FDA-Public Use
  Company Number: US-ABBVIE-4291844

PATIENT
  Sex: Female

DRUGS (1)
  1. HUMIRA [Suspect]
     Active Substance: ADALIMUMAB
     Indication: Ankylosing spondylitis
     Dosage: CITRATE FREE
     Route: 058

REACTIONS (6)
  - Bladder obstruction [Unknown]
  - Arthritis [Unknown]
  - Pancreatic disorder [Unknown]
  - Shoulder operation [Unknown]
  - Norovirus infection [Unknown]
  - Drug hypersensitivity [Unknown]
